FAERS Safety Report 12628581 (Version 1)
Quarter: 2016Q3

REPORT INFORMATION
  Report Type: Spontaneous
  Country: US (occurrence: US)
  Receive Date: 20160808
  Receipt Date: 20160808
  Transmission Date: 20161109
  Serious: No
  Sender: FDA-Public Use
  Company Number: US-JAZZ-2016-US-004047

PATIENT
  Sex: Female

DRUGS (58)
  1. ALBUTEROL SULFATE. [Concomitant]
     Active Substance: ALBUTEROL SULFATE
  2. DEXTROAMPHETAMINE. [Concomitant]
     Active Substance: DEXTROAMPHETAMINE
  3. GLUCOSAMINE + CHONDROITIN [Concomitant]
  4. STRATTERA [Concomitant]
     Active Substance: ATOMOXETINE HYDROCHLORIDE
  5. XYREM [Suspect]
     Active Substance: SODIUM OXYBATE
     Dosage: DOSE ADJUSTMENTS
     Route: 048
  6. XYREM [Suspect]
     Active Substance: SODIUM OXYBATE
     Dosage: 4.5 G, BID
     Route: 048
     Dates: start: 201509
  7. PROBIOTIC ACIDOPHILUS [Concomitant]
     Active Substance: LACTOBACILLUS ACIDOPHILUS
  8. ADVAIR HFA [Concomitant]
     Active Substance: FLUTICASONE PROPIONATE\SALMETEROL XINAFOATE
  9. IMODIUM A-D [Concomitant]
     Active Substance: LOPERAMIDE HYDROCHLORIDE
  10. PRILOSEC [Concomitant]
     Active Substance: OMEPRAZOLE MAGNESIUM
  11. HYOSCYAMINE. [Concomitant]
     Active Substance: HYOSCYAMINE
  12. FOLIC ACID. [Concomitant]
     Active Substance: FOLIC ACID
  13. SYMBICORT [Concomitant]
     Active Substance: BUDESONIDE\FORMOTEROL FUMARATE DIHYDRATE
  14. AYGESTIN [Concomitant]
     Active Substance: NORETHINDRONE ACETATE
  15. QNASL [Concomitant]
     Active Substance: BECLOMETHASONE DIPROPIONATE
  16. XYZAL [Concomitant]
     Active Substance: LEVOCETIRIZINE DIHYDROCHLORIDE
  17. DEXMETHYLPHENIDATE [Concomitant]
     Active Substance: DEXMETHYLPHENIDATE HYDROCHLORIDE
  18. ASTEPRO [Concomitant]
     Active Substance: AZELASTINE HYDROCHLORIDE
  19. IMITREX [Concomitant]
     Active Substance: SUMATRIPTAN SUCCINATE
  20. KETOCONAZOLE. [Concomitant]
     Active Substance: KETOCONAZOLE
  21. FOLIC ACID. [Concomitant]
     Active Substance: FOLIC ACID
  22. METROCREAM [Concomitant]
     Active Substance: METRONIDAZOLE
  23. NORTRIPTYLINE HCL [Concomitant]
     Active Substance: NORTRIPTYLINE HYDROCHLORIDE
  24. OMEGA 3 FISH OIL [Concomitant]
     Active Substance: FISH OIL\OMEGA-3 FATTY ACIDS
  25. VITAMIN B12 [Concomitant]
     Active Substance: CYANOCOBALAMIN
  26. CYCLOBENZAPRINE [Concomitant]
     Active Substance: CYCLOBENZAPRINE
  27. METROGEL [Concomitant]
     Active Substance: METRONIDAZOLE
  28. NYSTATIN W/TRIAMCINOLONE [Concomitant]
  29. MESALAMINE. [Concomitant]
     Active Substance: MESALAMINE
  30. XYREM [Suspect]
     Active Substance: SODIUM OXYBATE
     Indication: NARCOLEPSY
     Dosage: 2.25 G, BID
     Route: 048
     Dates: start: 200702, end: 2007
  31. XYREM [Suspect]
     Active Substance: SODIUM OXYBATE
     Indication: CATAPLEXY
     Dosage: 2.25 G, BID
     Route: 048
     Dates: start: 201301, end: 201302
  32. EPINEPHRINE. [Concomitant]
     Active Substance: EPINEPHRINE
  33. LEVBID [Concomitant]
     Active Substance: HYOSCYAMINE SULFATE
  34. ZANTAC [Concomitant]
     Active Substance: RANITIDINE HYDROCHLORIDE
  35. GOLYTELY [Concomitant]
     Active Substance: POLYETHYLENE GLYCOL 3350\POTASSIUM CHLORIDE\SODIUM BICARBONATE\SODIUM CHLORIDE\SODIUM SULFATE ANHYDROUS
  36. QUERCETIN [Concomitant]
     Active Substance: QUERCETIN
  37. FLEXERIL [Concomitant]
     Active Substance: CYCLOBENZAPRINE HYDROCHLORIDE
  38. FOCALIN [Concomitant]
     Active Substance: DEXMETHYLPHENIDATE HYDROCHLORIDE
  39. AZELASTINE [Concomitant]
     Active Substance: AZELASTINE
  40. MAXALT [Concomitant]
     Active Substance: RIZATRIPTAN BENZOATE
  41. PROVIGIL [Concomitant]
     Active Substance: MODAFINIL
  42. TOPAMAX [Concomitant]
     Active Substance: TOPIRAMATE
  43. MULTIPLE VITAMINS [Concomitant]
     Active Substance: VITAMINS
  44. OMNARIS [Concomitant]
     Active Substance: CICLESONIDE
  45. SULFASALAZINE. [Concomitant]
     Active Substance: SULFASALAZINE
  46. GUAIFENESIN. [Concomitant]
     Active Substance: GUAIFENESIN
  47. ALLEGRA [Concomitant]
     Active Substance: FEXOFENADINE HYDROCHLORIDE
  48. GLUCOSAMINE + CHONDROITIN WITH MSM [Concomitant]
  49. CRANBERRY. [Concomitant]
     Active Substance: CRANBERRY
  50. BUPROPION HCL [Concomitant]
     Active Substance: BUPROPION HYDROCHLORIDE
  51. ASTELIN [Concomitant]
     Active Substance: AZELASTINE HYDROCHLORIDE
  52. BUPROPION HCL [Concomitant]
     Active Substance: BUPROPION HYDROCHLORIDE
  53. BUPROPION. [Suspect]
     Active Substance: BUPROPION
     Indication: PRODUCT USED FOR UNKNOWN INDICATION
     Dosage: UNK
     Dates: start: 20150921, end: 20160125
  54. PROTONIX [Concomitant]
     Active Substance: PANTOPRAZOLE SODIUM
  55. RESTASIS [Concomitant]
     Active Substance: CYCLOSPORINE
  56. BECLOMETHASONE [Concomitant]
     Active Substance: BECLOMETHASONE
  57. SKELAXIN [Concomitant]
     Active Substance: METAXALONE
  58. TURMERIC [Concomitant]
     Active Substance: TURMERIC

REACTIONS (4)
  - Palpitations [Unknown]
  - Mood altered [Unknown]
  - Sinus disorder [Unknown]
  - Mental impairment [Unknown]
